FAERS Safety Report 7220017-1 (Version None)
Quarter: 2011Q1

REPORT INFORMATION
  Report Type: 
  Country: None (occurrence: None)
  Receive Date: 20110111
  Receipt Date: 20110110
  Transmission Date: 20110831
  Serious: Yes (Other)
  Sender: FDA-Public Use
  Company Number: US-AMGEN-USASP2011001509

PATIENT

DRUGS (2)
  1. CHEMOTHERAPEUTICS NOS [Concomitant]
     Indication: BREAST CANCER
  2. NEULASTA [Suspect]
     Indication: NEUTROPENIA
     Dates: start: 20101201

REACTIONS (4)
  - ABDOMINAL DISCOMFORT [None]
  - PAIN IN EXTREMITY [None]
  - ARTHRALGIA [None]
  - MOBILITY DECREASED [None]
